FAERS Safety Report 8385294 (Version 2)
Quarter: 2015Q1

REPORT INFORMATION
  Report Type: Report from Study
  Country: US (occurrence: US)
  Receive Date: 20120202
  Receipt Date: 20150304
  Transmission Date: 20150721
  Serious: Yes (Death, Hospitalization)
  Sender: FDA-Public Use
  Company Number: US-ROCHE-1035796

PATIENT
  Sex: Male

DRUGS (34)
  1. ERLOTINIB [Suspect]
     Active Substance: ERLOTINIB
     Indication: MALIGNANT RESPIRATORY TRACT NEOPLASM
     Route: 048
  2. ZOMETA [Concomitant]
     Active Substance: ZOLEDRONIC ACID
     Route: 065
  3. TAXOL [Concomitant]
     Active Substance: PACLITAXEL
  4. TYLENOL [Concomitant]
     Active Substance: ACETAMINOPHEN
  5. METFORMIN [Concomitant]
     Active Substance: METFORMIN HYDROCHLORIDE
     Route: 048
  6. NEUPOGEN [Concomitant]
     Active Substance: FILGRASTIM
     Route: 058
  7. ERLOTINIB [Suspect]
     Active Substance: ERLOTINIB
     Route: 048
  8. ASPIRIN. [Concomitant]
     Active Substance: ASPIRIN
  9. PROCRIT [Concomitant]
     Active Substance: ERYTHROPOIETIN
     Dosage: 60000 UNITS
     Route: 058
  10. L-GLUTAMINE [Concomitant]
  11. FOLIC ACID. [Concomitant]
     Active Substance: FOLIC ACID
     Route: 048
  12. CARBOPLATIN. [Concomitant]
     Active Substance: CARBOPLATIN
  13. FISH OIL [Concomitant]
     Active Substance: FISH OIL
  14. ALLEGRA [Concomitant]
     Active Substance: FEXOFENADINE HYDROCHLORIDE
  15. DEXAMETHASONE (ORAL) [Concomitant]
     Route: 048
  16. AVASTIN [Suspect]
     Active Substance: BEVACIZUMAB
     Indication: MALIGNANT RESPIRATORY TRACT NEOPLASM
     Route: 042
     Dates: start: 2004
  17. DIFLUCAN [Concomitant]
     Active Substance: FLUCONAZOLE
     Route: 065
  18. ALOXI [Concomitant]
     Active Substance: PALONOSETRON HYDROCHLORIDE
     Route: 065
  19. PROCRIT [Concomitant]
     Active Substance: ERYTHROPOIETIN
     Dosage: DOSE: 80000 UNITS
     Route: 058
  20. GEMZAR [Concomitant]
     Active Substance: GEMCITABINE HYDROCHLORIDE
  21. LEVAQUIN [Concomitant]
     Active Substance: LEVOFLOXACIN
     Route: 042
  22. LOTREL [Concomitant]
     Active Substance: AMLODIPINE BESYLATE\BENAZEPRIL HYDROCHLORIDE
     Indication: HYPERTENSION
     Dosage: DOSE: 5/20 MG
     Route: 065
  23. IBUPROFEN. [Concomitant]
     Active Substance: IBUPROFEN
  24. VICODIN [Concomitant]
     Active Substance: ACETAMINOPHEN\HYDROCODONE BITARTRATE
  25. GLYBURIDE. [Concomitant]
     Active Substance: GLYBURIDE
  26. NYSTATIN. [Concomitant]
     Active Substance: NYSTATIN
     Dosage: 5000,000UNITS 2TABS
     Route: 065
  27. DECADRON [Concomitant]
     Active Substance: DEXAMETHASONE
     Route: 065
  28. ALIMTA [Concomitant]
     Active Substance: PEMETREXED DISODIUM
     Route: 065
  29. FERRLECIT (UNITED STATES) [Concomitant]
     Route: 042
  30. CELEBREX [Concomitant]
     Active Substance: CELECOXIB
  31. RESVERATROL [Concomitant]
     Active Substance: RESVERATROL
     Route: 065
  32. BENADRYL [Concomitant]
     Active Substance: DIPHENHYDRAMINE HYDROCHLORIDE
     Route: 042
  33. COMPAZINE [Concomitant]
     Active Substance: PROCHLORPERAZINE MALEATE
  34. OLIVE OIL [Concomitant]
     Active Substance: OLIVE OIL
     Route: 065

REACTIONS (41)
  - Constipation [Unknown]
  - Dyspnoea exertional [Unknown]
  - Pyrexia [Unknown]
  - Chills [Unknown]
  - Chest pain [Unknown]
  - Abdominal discomfort [Unknown]
  - Pain in jaw [Unknown]
  - Paraesthesia [Unknown]
  - Neutropenia [Unknown]
  - Night sweats [Unknown]
  - Myocardial infarction [Unknown]
  - Fatigue [Unknown]
  - Pain in extremity [Unknown]
  - Anaemia [Unknown]
  - Incision site pain [Unknown]
  - Hiccups [Unknown]
  - Abdominal tenderness [Unknown]
  - Weight decreased [Unknown]
  - Cough [Unknown]
  - Rash [Unknown]
  - Fluid overload [Unknown]
  - Generalised erythema [Unknown]
  - Bone pain [Unknown]
  - Haemoglobin decreased [Unknown]
  - Nausea [Unknown]
  - Hypoaesthesia [Unknown]
  - Depression [Unknown]
  - Pleural effusion [Unknown]
  - Neuropathy peripheral [Unknown]
  - Pulmonary pain [Unknown]
  - Vomiting [Recovered/Resolved]
  - Retching [Recovered/Resolved]
  - Hyponatraemia [Unknown]
  - Back pain [Unknown]
  - Abdominal pain upper [Unknown]
  - Death [Fatal]
  - Disease progression [Unknown]
  - Nasal congestion [Unknown]
  - Sinus congestion [Unknown]
  - Diarrhoea [Recovered/Resolved]
  - Asthenia [Unknown]
